FAERS Safety Report 11269154 (Version 1)
Quarter: 2015Q3

REPORT INFORMATION
  Report Type: Spontaneous
  Country: US (occurrence: None)
  Receive Date: 20150710
  Receipt Date: 20150710
  Transmission Date: 20151125
  Serious: Yes (Hospitalization, Other)
  Sender: FDA-Public Use
  Company Number: US2015029907

PATIENT
  Age: 26 Month
  Sex: Male

DRUGS (1)
  1. SENSODYNE EXTRA WHITENING [Suspect]
     Active Substance: POTASSIUM NITRATE\SODIUM FLUORIDE
     Indication: DENTAL CLEANING
     Route: 004
     Dates: start: 20150226

REACTIONS (6)
  - Renal failure [None]
  - Diarrhoea [None]
  - Drug administration error [None]
  - Dysuria [None]
  - Laboratory test abnormal [None]
  - Vomiting [None]

NARRATIVE: CASE EVENT DATE: 20150226
